FAERS Safety Report 5756486-3 (Version None)
Quarter: 2008Q2

REPORT INFORMATION
  Report Type: 
  Country: None (occurrence: None)
  Receive Date: 20080603
  Receipt Date: 20080521
  Transmission Date: 20081010
  Serious: Yes (Hospitalization)
  Sender: FDA-Public Use
  Company Number: FR-BAYER-200819122GPV

PATIENT
  Age: 39 Year
  Sex: Male

DRUGS (1)
  1. MABCAMPATH [Suspect]
     Indication: MYCOSIS FUNGOIDES
     Route: 042
     Dates: start: 20071108, end: 20071128

REACTIONS (2)
  - DERMATITIS EXFOLIATIVE [None]
  - PYREXIA [None]
